FAERS Safety Report 7366870-2 (Version None)
Quarter: 2011Q1

REPORT INFORMATION
  Report Type: 
  Country: None (occurrence: None)
  Receive Date: 20110322
  Receipt Date: 20110314
  Transmission Date: 20110831
  Serious: Yes (Death, Hospitalization)
  Sender: FDA-Public Use
  Company Number: A0900060A

PATIENT
  Age: 60 Year
  Sex: Male
  Weight: 126 kg

DRUGS (5)
  1. CARDIAZEM [Concomitant]
  2. AVANDIA [Suspect]
     Dosage: 4MG PER DAY
     Route: 048
     Dates: start: 20001101, end: 20040702
  3. GLUCOPHAGE [Concomitant]
  4. ZOCOR [Concomitant]
  5. ZETIA [Concomitant]

REACTIONS (3)
  - MYOCARDIAL INFARCTION [None]
  - ARRHYTHMIA [None]
  - CARDIAC ARREST [None]
